FAERS Safety Report 7590946-8 (Version None)
Quarter: 2011Q3

REPORT INFORMATION
  Report Type: 
  Country: None (occurrence: None)
  Receive Date: 20110705
  Receipt Date: 20110628
  Transmission Date: 20111222
  Serious: Yes (Other)
  Sender: FDA-Public Use
  Company Number: PHHO2011NL06364

PATIENT
  Sex: Female
  Weight: 97 kg

DRUGS (4)
  1. METHYLPREDNISOLONE ACETATE [Concomitant]
     Indication: MULTIPLE SCLEROSIS RELAPSE
     Dosage: UNK
     Dates: start: 20110405
  2. GILENYA [Suspect]
     Indication: MULTIPLE SCLEROSIS
     Dosage: 0.5 MG, QD
     Route: 048
     Dates: start: 20110315, end: 20110409
  3. DURATEARS [Concomitant]
     Indication: DRY EYE
     Dosage: UNK
     Dates: start: 20110405
  4. MOVICOLON [Concomitant]
     Indication: CONSTIPATION

REACTIONS (2)
  - EPILEPSY [None]
  - DISEASE PROGRESSION [None]
